FAERS Safety Report 6164819-1 (Version None)
Quarter: 2009Q2

REPORT INFORMATION
  Report Type: 
  Country: None (occurrence: None)
  Receive Date: 20090423
  Receipt Date: 20090415
  Transmission Date: 20091009
  Serious: Yes (Other)
  Sender: FDA-Public Use
  Company Number: PHEH2009US03853

PATIENT

DRUGS (1)
  1. TRILEPTAL [Suspect]

REACTIONS (2)
  - CEREBELLAR ATROPHY [None]
  - CEREBRAL ATROPHY [None]
